FAERS Safety Report 20458726 (Version 2)
Quarter: 2022Q2

REPORT INFORMATION
  Report Type: Spontaneous
  Country: US (occurrence: US)
  Receive Date: 20220211
  Receipt Date: 20220414
  Transmission Date: 20220721
  Serious: Yes (Death, Hospitalization, Other)
  Sender: FDA-Public Use
  Company Number: US-TEVA-2022-US-2007375

PATIENT
  Age: 69 Year
  Sex: Female
  Weight: 92.53 kg

DRUGS (24)
  1. HYDROCHLOROTHIAZIDE\VALSARTAN [Suspect]
     Active Substance: HYDROCHLOROTHIAZIDE\VALSARTAN
     Indication: Hypertension
     Dosage: 2 DOSAGE FORMS DAILY; DOSE: 160 MG/12.5 MG
     Route: 048
     Dates: start: 20180424, end: 20180903
  2. LOSARTAN [Suspect]
     Active Substance: LOSARTAN
     Indication: Hypertension
     Dosage: DOSE: 100 MG
     Route: 065
     Dates: start: 20180810, end: 20181105
  3. LOSARTAN [Suspect]
     Active Substance: LOSARTAN
     Dosage: 100 MILLIGRAM DAILY;
     Route: 048
     Dates: start: 2018
  4. HYDROCHLOROTHIAZIDE\VALSARTAN [Suspect]
     Active Substance: HYDROCHLOROTHIAZIDE\VALSARTAN
     Indication: Hypertension
     Dosage: DOSE: 160 MG/12.5 MG
     Route: 065
     Dates: start: 20150107, end: 20170816
  5. HYDROCHLOROTHIAZIDE\VALSARTAN [Suspect]
     Active Substance: HYDROCHLOROTHIAZIDE\VALSARTAN
     Dosage: DOSE: 160 MG/12.5 MG
     Route: 065
     Dates: start: 2017
  6. DIOVAN HCT [Suspect]
     Active Substance: HYDROCHLOROTHIAZIDE\VALSARTAN
     Dosage: 1 DOSAGE FORMS DAILY; DOSE: 160-12.5 MG TABLET
     Route: 048
  7. HYZAAR [Suspect]
     Active Substance: HYDROCHLOROTHIAZIDE\LOSARTAN POTASSIUM
     Dosage: 1 DOSAGE FORMS DAILY; DOSE: 100-25 MG TABLET
     Route: 048
     Dates: end: 2019
  8. PRAVACHOL [Concomitant]
     Active Substance: PRAVASTATIN SODIUM
     Indication: Hyperlipidaemia
     Dosage: 20 MILLIGRAM DAILY; DOSE: 20 MG NIGHTLY
     Route: 048
     Dates: start: 1997, end: 20200331
  9. TOPROL XL [Concomitant]
     Active Substance: METOPROLOL SUCCINATE
     Indication: Hypertension
     Dosage: 200 MILLIGRAM DAILY; EXTENDED RELEASE TABLET
     Route: 048
     Dates: start: 1997, end: 20200331
  10. LASIX [Concomitant]
     Active Substance: FUROSEMIDE
     Indication: Hypertension
     Dosage: 20 MILLIGRAM DAILY;
     Route: 048
     Dates: start: 2018, end: 20200331
  11. LANTUS [Concomitant]
     Active Substance: INSULIN GLARGINE
     Indication: Diabetes mellitus
     Dosage: 100 IU (INTERNATIONAL UNIT) DAILY;
     Route: 065
     Dates: end: 20200331
  12. GLUCOPHAGE [Concomitant]
     Active Substance: METFORMIN HYDROCHLORIDE
     Indication: Diabetes mellitus
     Dosage: 2000 MILLIGRAM DAILY;
     Route: 048
     Dates: end: 20200331
  13. CLARITIN [Concomitant]
     Active Substance: LORATADINE
     Indication: Hypersensitivity
     Dosage: 10 MILLIGRAM DAILY;
     Route: 048
     Dates: end: 20200331
  14. PROTONIX [Concomitant]
     Active Substance: PANTOPRAZOLE SODIUM
     Indication: Gastrooesophageal reflux disease
     Dosage: 40 MILLIGRAM DAILY; DELAYED RELEASE
     Route: 048
  15. VITAMIN D [Concomitant]
     Active Substance: VITAMIN D NOS
     Indication: Routine health maintenance
     Dosage: 1000 IU (INTERNATIONAL UNIT) DAILY;
     Route: 065
     Dates: end: 20200331
  16. ASPIRIN [Concomitant]
     Active Substance: ASPIRIN
     Indication: Routine health maintenance
     Dosage: 81 MILLIGRAM DAILY;
     Route: 048
     Dates: end: 20200331
  17. Humalog Kwikipen [Concomitant]
     Dosage: 3 IU (INTERNATIONAL UNIT) DAILY; PEN INJECTOR (CONCENTRATION 100 UNITS/ML) (1 UNITS SUBCUTANEOUSLY 3
     Route: 058
  18. Toujeo solostarU-300 Insulin [Concomitant]
     Dosage: 1 IU (INTERNATIONAL UNIT) DAILY; PEN INJECTOR (CONCENTRATION 300 UNITS/ML) 1 UNIT ONCE DAILY
     Route: 058
  19. Procardia-XL [Concomitant]
     Dosage: 60 MILLIGRAM DAILY; EXTENDED RELEASE
     Route: 048
  20. ZYPREXA [Concomitant]
     Active Substance: OLANZAPINE
     Dosage: 5 MILLIGRAM DAILY; 5 MG BY MOUTH NIGHTLY
     Route: 048
  21. ZOFRAN [Concomitant]
     Active Substance: ONDANSETRON HYDROCHLORIDE
     Dosage: 12 MILLIGRAM DAILY; DOSE: AS NEEDED
     Route: 048
  22. ROXICODONE [Concomitant]
     Active Substance: OXYCODONE HYDROCHLORIDE
     Indication: Pain
     Dosage: 20 MILLIGRAM DAILY; DOSE: IMMEDIATE RELEASE TABLET AS NEEDED
     Route: 048
  23. PHENERGAN [Concomitant]
     Active Substance: PROMETHAZINE HYDROCHLORIDE
     Dosage: 75 MILLIGRAM DAILY; DOSE: AS NEEDED
     Route: 048
  24. FEMARA [Concomitant]
     Active Substance: LETROZOLE
     Indication: Breast cancer female
     Dosage: 2.5 MILLIGRAM DAILY;
     Route: 048

REACTIONS (1)
  - Pancreatic carcinoma stage IV [Fatal]
